FAERS Safety Report 19149437 (Version 2)
Quarter: 2021Q2

REPORT INFORMATION
  Report Type: Spontaneous
  Country: JP (occurrence: JP)
  Receive Date: 20210416
  Receipt Date: 20210608
  Transmission Date: 20210717
  Serious: Yes (Other)
  Sender: FDA-Public Use
  Company Number: JP-TAKEDA-2021TUS010279

PATIENT
  Age: 69 Year
  Sex: Female

DRUGS (12)
  1. POMALIDOMIDE [Concomitant]
     Active Substance: POMALIDOMIDE
     Dosage: 4 MILLIGRAM, QD
     Route: 048
     Dates: start: 20210216, end: 2021
  2. LENALIDOMIDE [Concomitant]
     Active Substance: LENALIDOMIDE
     Indication: LEUKAEMIA
     Dosage: UNK
     Route: 048
     Dates: start: 202103, end: 2021
  3. POMALIDOMIDE [Concomitant]
     Active Substance: POMALIDOMIDE
     Indication: LEUKAEMIA
     Dosage: 3 MILLIGRAM, QD
     Route: 048
  4. DEXAMETHASONE. [Concomitant]
     Active Substance: DEXAMETHASONE
     Dosage: UNK
     Route: 065
     Dates: start: 202103, end: 2021
  5. VELCADE [Suspect]
     Active Substance: BORTEZOMIB
     Dosage: 1 MILLIGRAM/SQ. METER, 2/WEEK
     Route: 058
     Dates: start: 20210216, end: 2021
  6. DARZALEX [Suspect]
     Active Substance: DARATUMUMAB
     Indication: LEUKAEMIA
     Dosage: UNK
     Route: 041
     Dates: start: 202103, end: 2021
  7. DEXAMETHASONE. [Concomitant]
     Active Substance: DEXAMETHASONE
     Indication: LEUKAEMIA
     Dosage: UNK
     Route: 065
  8. LENALIDOMIDE [Concomitant]
     Active Substance: LENALIDOMIDE
     Dosage: UNK
     Route: 048
     Dates: start: 20210406
  9. VELCADE [Suspect]
     Active Substance: BORTEZOMIB
     Indication: LEUKAEMIA
     Dosage: 1.3 MILLIGRAM/SQ. METER, 2/WEEK
     Route: 058
  10. DARZALEX [Suspect]
     Active Substance: DARATUMUMAB
     Dosage: UNK
     Route: 041
     Dates: start: 20210406, end: 2021
  11. DEXAMETHASONE. [Concomitant]
     Active Substance: DEXAMETHASONE
     Dosage: UNK
     Route: 065
     Dates: start: 20210216, end: 2021
  12. DEXAMETHASONE. [Concomitant]
     Active Substance: DEXAMETHASONE
     Dosage: UNK
     Route: 065
     Dates: start: 20210406, end: 2021

REACTIONS (2)
  - Pain of skin [Unknown]
  - Neuropathy peripheral [Recovered/Resolved]
